FAERS Safety Report 6242359-9 (Version None)
Quarter: 2009Q2

REPORT INFORMATION
  Report Type: 
  Country: None (occurrence: None)
  Receive Date: 20090622
  Receipt Date: 20090622
  Transmission Date: 20091009
  Serious: No
  Sender: FDA-Public Use
  Company Number: None

PATIENT
  Sex: Male
  Weight: 106.5953 kg

DRUGS (1)
  1. ZICAM NASAL GEL ZINC GLUCONICUM 2X MATRIXX INTIATIVES LLC [Suspect]
     Indication: NASOPHARYNGITIS
     Dosage: 1 APPLICATION IN EACH NOSTRIL ONLY 1 APPLICATION NASAL
     Route: 045
     Dates: start: 20050701, end: 20050701

REACTIONS (4)
  - AGEUSIA [None]
  - ANOSMIA [None]
  - NASAL DISCOMFORT [None]
  - PAROSMIA [None]
